FAERS Safety Report 5427535-7 (Version None)
Quarter: 2007Q3

REPORT INFORMATION
  Report Type: 
  Country: None (occurrence: None)
  Receive Date: 20070823
  Receipt Date: 20070817
  Transmission Date: 20080115
  Serious: Yes (Life-Threatening)
  Sender: FDA-Public Use
  Company Number: 2007-163037-NL

PATIENT
  Age: 39 Year
  Sex: Female

DRUGS (7)
  1. ROCURONIUM BROMIDE [Suspect]
     Indication: MUSCLE RELAXANT THERAPY
     Dosage: 35 MG ONCE/5 MG ONCE INTRAVENOUS (NOS)
     Route: 042
     Dates: start: 20070807, end: 20070807
  2. ROCURONIUM BROMIDE [Suspect]
     Indication: MUSCLE RELAXANT THERAPY
     Dosage: 35 MG ONCE/5 MG ONCE INTRAVENOUS (NOS)
     Route: 042
     Dates: start: 20070807, end: 20070807
  3. SEVOFLURANE [Concomitant]
  4. OXYTOCIN [Concomitant]
  5. NEOSTIGMINE [Concomitant]
  6. ERUVIN [Concomitant]
  7. POTINUL [Concomitant]

REACTIONS (4)
  - BRONCHOSPASM [None]
  - LARYNGOSPASM [None]
  - MUSCULOSKELETAL STIFFNESS [None]
  - THERAPEUTIC RESPONSE DELAYED [None]
